FAERS Safety Report 19488681 (Version 3)
Quarter: 2022Q1

REPORT INFORMATION
  Report Type: Report from Study
  Country: AU (occurrence: AU)
  Receive Date: 20210702
  Receipt Date: 20220328
  Transmission Date: 20220423
  Serious: Yes (Life-Threatening, Disabling)
  Sender: FDA-Public Use
  Company Number: AU-PFIZER INC-2021787844

PATIENT
  Age: 70 Year
  Sex: Female
  Weight: 66 kg

DRUGS (7)
  1. PALBOCICLIB [Suspect]
     Active Substance: PALBOCICLIB
     Indication: Adenocarcinoma pancreas
     Dosage: 125 MG, 17 DAYS - CYCLE 1
     Route: 048
     Dates: start: 20210526, end: 20210612
  2. AVELUMAB [Suspect]
     Active Substance: AVELUMAB
     Indication: Adenocarcinoma pancreas
     Dosage: UNK
     Route: 042
  3. DIABEX [Concomitant]
     Active Substance: METFORMIN HYDROCHLORIDE
     Dosage: 1 G, 2X/DAY
     Route: 048
     Dates: start: 19900101, end: 20210724
  4. GLICLAZIDE [Concomitant]
     Active Substance: GLICLAZIDE
     Dosage: 60 MG, DAILY
     Route: 048
     Dates: start: 19920101, end: 20210724
  5. OXYCODONE [Concomitant]
     Active Substance: OXYCODONE
     Indication: Pain
     Dosage: 5 MG, AS NEEDED
     Route: 048
     Dates: start: 20170101, end: 20210724
  6. OXYCONTIN [Concomitant]
     Active Substance: OXYCODONE HYDROCHLORIDE
     Indication: Pain
     Dosage: 20 MG, 2X/DAY
     Route: 048
     Dates: start: 20170101, end: 20210124
  7. RIVAROXABAN [Concomitant]
     Active Substance: RIVAROXABAN
     Indication: Deep vein thrombosis
     Dosage: 10 MG, DAILY
     Route: 048
     Dates: start: 20200101, end: 20210724

REACTIONS (1)
  - Cerebrovascular accident [Not Recovered/Not Resolved]

NARRATIVE: CASE EVENT DATE: 20210618
